FAERS Safety Report 7993392-8 (Version None)
Quarter: 2011Q4

REPORT INFORMATION
  Report Type: 
  Country: None (occurrence: None)
  Receive Date: 20111219
  Receipt Date: 20110830
  Transmission Date: 20120403
  Serious: No
  Sender: FDA-Public Use
  Company Number: US-ASTRAZENECA-2011SE18588

PATIENT
  Age: 46 Year
  Sex: Female

DRUGS (2)
  1. NIACIN [Concomitant]
     Indication: BLOOD CHOLESTEROL ABNORMAL
  2. CRESTOR [Suspect]
     Indication: BLOOD CHOLESTEROL ABNORMAL
     Route: 048
     Dates: start: 20090101, end: 20110301

REACTIONS (2)
  - BLOOD CHOLESTEROL INCREASED [None]
  - DRUG DOSE OMISSION [None]
